FAERS Safety Report 9992635 (Version 1)
Quarter: 2014Q1

REPORT INFORMATION
  Report Type: Spontaneous
  Country: US (occurrence: US)
  Receive Date: 20140310
  Receipt Date: 20140310
  Transmission Date: 20141002
  Serious: No
  Sender: FDA-Public Use
  Company Number: US-ABBVIE-13P-163-1111285-00

PATIENT
  Age: 20 Year
  Sex: Female
  Weight: 64.47 kg

DRUGS (5)
  1. LUPRON DEPOT [Suspect]
     Indication: ENDOMETRIOSIS
     Dates: start: 20130524
  2. AYGESTIN [Suspect]
     Indication: DRUG THERAPY ENHANCEMENT
     Dates: start: 20130324, end: 201304
  3. AGESTIN [Suspect]
     Dates: start: 201306
  4. SUMATRIPTAN [Concomitant]
     Indication: CONVULSION
  5. TOPAMAX [Concomitant]
     Indication: CONVULSION

REACTIONS (2)
  - Vaginal haemorrhage [Recovered/Resolved]
  - Endometriosis [Not Recovered/Not Resolved]
